FAERS Safety Report 24335080 (Version 1)
Quarter: 2024Q3

REPORT INFORMATION
  Report Type: Spontaneous
  Country: CN (occurrence: CN)
  Receive Date: 20240918
  Receipt Date: 20240918
  Transmission Date: 20241016
  Serious: Yes (Life-Threatening, Hospitalization)
  Sender: PFIZER
  Company Number: CN-PFIZER INC-PV202400120034

PATIENT
  Age: 12 Year
  Sex: Female
  Weight: 40.8 kg

DRUGS (6)
  1. METHOTREXATE SODIUM [Suspect]
     Active Substance: METHOTREXATE SODIUM
     Indication: Acute myeloid leukaemia
     Dosage: 0.38 G, 1X/DAY
     Route: 041
     Dates: start: 20240806, end: 20240806
  2. PEGASPARGASE [Suspect]
     Active Substance: PEGASPARGASE
     Indication: Acute myeloid leukaemia
     Dosage: 4.2 ML, 1X/DAY
     Route: 030
     Dates: start: 20240806, end: 20240806
  3. MERCAPTOPURINE [Suspect]
     Active Substance: MERCAPTOPURINE
     Indication: Acute myeloid leukaemia
     Dosage: 25 MG, 1X/DAY
     Route: 048
     Dates: start: 20240805, end: 20240809
  4. VINCRISTINE SULFATE [Suspect]
     Active Substance: VINCRISTINE SULFATE
     Indication: Acute myeloid leukaemia
     Dosage: 1.9 MG, 1X/DAY
     Route: 042
     Dates: start: 20240806, end: 20240806
  5. SODIUM CHLORIDE [Concomitant]
     Active Substance: SODIUM CHLORIDE
     Indication: Acute myeloid leukaemia
     Dosage: 100 ML, 1X/DAY
     Route: 041
     Dates: start: 20240806, end: 20240806
  6. SODIUM CHLORIDE [Concomitant]
     Active Substance: SODIUM CHLORIDE
     Indication: Acute myeloid leukaemia
     Dosage: 20 ML, 1X/DAY
     Route: 042
     Dates: start: 20240806, end: 20240806

REACTIONS (1)
  - Myelosuppression [Recovering/Resolving]

NARRATIVE: CASE EVENT DATE: 20240819
